FAERS Safety Report 7005995-8 (Version None)
Quarter: 2010Q3

REPORT INFORMATION
  Report Type: 
  Country: None (occurrence: None)
  Receive Date: 20100921
  Receipt Date: 20100909
  Transmission Date: 20110219
  Serious: Yes (Death, Other)
  Sender: FDA-Public Use
  Company Number: PL-WYE-H17426210

PATIENT
  Age: 43 Year
  Sex: Male

DRUGS (7)
  1. TYGACIL [Suspect]
     Indication: PNEUMONIA KLEBSIELLA
     Dosage: UNKNOWN
  2. TYGACIL [Suspect]
     Indication: PNEUMONIA STAPHYLOCOCCAL
  3. TYGACIL [Suspect]
     Indication: CANDIDIASIS
  4. TYGACIL [Suspect]
     Indication: ENTEROCOCCAL INFECTION
  5. FLUCONAZOLE [Suspect]
     Dosage: UNKNOWN
  6. METRONIDAZOLE [Suspect]
     Dosage: UNKNOWN
  7. UNASYN [Suspect]
     Dosage: UNKNOWN

REACTIONS (2)
  - DISEASE PROGRESSION [None]
  - PATHOGEN RESISTANCE [None]
